FAERS Safety Report 4731062-X (Version None)
Quarter: 2005Q3

REPORT INFORMATION
  Report Type: 
  Country: None (occurrence: None)
  Receive Date: 20050726
  Receipt Date: 20040323
  Transmission Date: 20060218
  Serious: Yes (Hospitalization)
  Sender: FDA-Public Use
  Company Number: 04GER0104

PATIENT
  Sex: Female

DRUGS (6)
  1. AGGRASTAT [Suspect]
     Dosage: N/A (HR)
     Dates: start: 20040301, end: 20040301
  2. AGGRASTAT [Suspect]
     Dosage: N/A, INTRAVENOUS
     Route: 042
     Dates: start: 20040301, end: 20040301
  3. ASPIRIN [Concomitant]
  4. CLOPIDOGREL BISULFATE [Concomitant]
  5. INSULIN [Concomitant]
  6. METOPROLOL TARTRATE [Concomitant]

REACTIONS (1)
  - THROMBOCYTOPENIA [None]
